FAERS Safety Report 4777961-4 (Version None)
Quarter: 2005Q3

REPORT INFORMATION
  Report Type: 
  Country: None (occurrence: None)
  Receive Date: 20050921
  Receipt Date: 20050906
  Transmission Date: 20060218
  Serious: Yes (Other)
  Sender: FDA-Public Use
  Company Number: DE_050916874

PATIENT
  Age: 48 Year
  Sex: Female
  Weight: 52 kg

DRUGS (3)
  1. CYMBALTA [Suspect]
     Indication: DEPRESSION
     Dosage: 60 MG DAY
     Dates: start: 20050720
  2. CYMBALTA [Suspect]
     Indication: DISEASE RECURRENCE
     Dosage: 60 MG DAY
     Dates: start: 20050720
  3. CITALOPRAM HYDROBROMIDE [Concomitant]

REACTIONS (6)
  - AMENORRHOEA [None]
  - ANXIETY [None]
  - DRUG WITHDRAWAL SYNDROME [None]
  - FEELING ABNORMAL [None]
  - INSOMNIA [None]
  - WEIGHT DECREASED [None]
